FAERS Safety Report 10627271 (Version 1)
Quarter: 2014Q4

REPORT INFORMATION
  Report Type: Spontaneous
  Country: US (occurrence: US)
  Receive Date: 20141204
  Receipt Date: 20141204
  Transmission Date: 20150529
  Serious: No
  Sender: FDA-Public Use
  Company Number: US-SA-2014SA035568

PATIENT
  Sex: Female

DRUGS (1)
  1. NORPRAMIN [Suspect]
     Active Substance: DESIPRAMINE HYDROCHLORIDE
     Route: 065

REACTIONS (1)
  - Therapeutic response unexpected [Unknown]
